FAERS Safety Report 17745466 (Version 1)
Quarter: 2020Q2

REPORT INFORMATION
  Report Type: Spontaneous
  Country: FR (occurrence: FR)
  Receive Date: 20200505
  Receipt Date: 20200505
  Transmission Date: 20200714
  Serious: Yes (Hospitalization)
  Sender: FDA-Public Use
  Company Number: FR-ADDMEDICA-202000026

PATIENT
  Age: 17 Year
  Sex: Male
  Weight: 73 kg

DRUGS (2)
  1. SIKLOS [Suspect]
     Active Substance: HYDROXYUREA
     Indication: ESSENTIAL THROMBOCYTHAEMIA
     Route: 065
     Dates: start: 201905, end: 201912
  2. SIKLOS [Suspect]
     Active Substance: HYDROXYUREA
     Indication: ESSENTIAL THROMBOCYTHAEMIA
     Dosage: 2 DF/D
     Route: 065
     Dates: start: 201912, end: 202003

REACTIONS (6)
  - Product prescribing error [Recovered/Resolved]
  - Pancytopenia [Recovering/Resolving]
  - Presyncope [Unknown]
  - Dyspnoea [Unknown]
  - Headache [Unknown]
  - Accidental overdose [Recovered/Resolved]

NARRATIVE: CASE EVENT DATE: 201912
